FAERS Safety Report 6368456-5 (Version None)
Quarter: 2009Q3

REPORT INFORMATION
  Report Type: 
  Country: None (occurrence: None)
  Receive Date: 20090916
  Receipt Date: 20090901
  Transmission Date: 20100115
  Serious: Yes (Death)
  Sender: FDA-Public Use
  Company Number: KV200900602

PATIENT
  Age: 38 Year
  Sex: Male
  Weight: 89.3 kg

DRUGS (6)
  1. MORPHINE SULFATE [Suspect]
     Indication: PAIN
     Dosage: 15 MG, Q6 HRS PRN, ORAL
     Route: 048
     Dates: start: 20080220
  2. ZOLPIDEM [Suspect]
     Indication: DRUG USE FOR UNKNOWN INDICATION
  3. METAXALONE (METAXALONE) [Concomitant]
  4. VENLAFAXINE HCL [Concomitant]
  5. HYDROCODONE (HYDROCODONE) [Concomitant]
  6. ALPRAZOLAM [Concomitant]

REACTIONS (5)
  - ARTHRALGIA [None]
  - DRUG TOXICITY [None]
  - FEELING ABNORMAL [None]
  - MUSCLE SPASMS [None]
  - SINUSITIS [None]
